FAERS Safety Report 6908838-3 (Version None)
Quarter: 2010Q3

REPORT INFORMATION
  Report Type: 
  Country: None (occurrence: None)
  Receive Date: 20100805
  Receipt Date: 20100730
  Transmission Date: 20110219
  Serious: Yes (Hospitalization)
  Sender: FDA-Public Use
  Company Number: B0642797A

PATIENT
  Sex: Female

DRUGS (1)
  1. PAZOPANIB [Suspect]
     Indication: NEOPLASM MALIGNANT
     Route: 048
     Dates: start: 20100223, end: 20100322

REACTIONS (1)
  - HEPATIC FUNCTION ABNORMAL [None]
